FAERS Safety Report 13054029 (Version 3)
Quarter: 2017Q1

REPORT INFORMATION
  Report Type: Spontaneous
  Country: US (occurrence: US)
  Receive Date: 20161222
  Receipt Date: 20170307
  Transmission Date: 20170428
  Serious: Yes (Hospitalization, Other)
  Sender: FDA-Public Use
  Company Number: US-BAYER-2016-235907

PATIENT
  Age: 30 Year
  Sex: Female

DRUGS (1)
  1. BETASERON [Suspect]
     Active Substance: INTERFERON BETA-1B
     Dosage: 0.3 MG, QOD
     Route: 058
     Dates: start: 20141107

REACTIONS (5)
  - Pancreatitis [None]
  - Hepatic enzyme increased [None]
  - Hepatic lesion [None]
  - Cholelithiasis [Recovered/Resolved]
  - Drug dose omission [None]

NARRATIVE: CASE EVENT DATE: 20161209
